FAERS Safety Report 7639835-0 (Version None)
Quarter: 2011Q3

REPORT INFORMATION
  Report Type: 
  Country: None (occurrence: None)
  Receive Date: 20110727
  Receipt Date: 20110714
  Transmission Date: 20111222
  Serious: Yes (Other)
  Sender: FDA-Public Use
  Company Number: NL-MYLANLABS-2011S1014644

PATIENT
  Age: 90 Year
  Sex: Female
  Weight: 68 kg

DRUGS (8)
  1. OMEPRAZOLE [Suspect]
     Indication: PROPHYLAXIS AGAINST GASTROINTESTINAL ULCER
     Dosage: 1 DAAGS 1 CAPSULE
     Route: 048
     Dates: start: 20090101, end: 20110610
  2. ACETYLSALICYLZUUR NEURO [Concomitant]
     Indication: PRODUCT USED FOR UNKNOWN INDICATION
     Dosage: 1 DD 1
     Route: 048
     Dates: start: 20080101
  3. METHYLCELLULOSE [Concomitant]
     Indication: PRODUCT USED FOR UNKNOWN INDICATION
     Dosage: 3 DD BEIDE OGEN
     Route: 047
     Dates: start: 20010101
  4. MEROPENEM [Concomitant]
     Indication: PRODUCT USED FOR UNKNOWN INDICATION
     Dosage: 2X DAAGS
     Route: 042
     Dates: start: 20110610, end: 20110621
  5. HYDROCOBAMINE [Concomitant]
     Indication: PRODUCT USED FOR UNKNOWN INDICATION
     Dosage: 1 X PER MAAND 1 INJECTIE
     Route: 058
     Dates: start: 20000101
  6. CITALOPRAM HYDROBROMIDE [Concomitant]
     Indication: PRODUCT USED FOR UNKNOWN INDICATION
     Dosage: 1 DD 1 TABLET
     Route: 048
     Dates: start: 20100101
  7. PARACETAMOL PCH [Concomitant]
     Indication: PRODUCT USED FOR UNKNOWN INDICATION
     Dosage: 3 DD 2
     Route: 048
     Dates: start: 20100601
  8. DIPYRIDAMOL PCH [Concomitant]
     Indication: PRODUCT USED FOR UNKNOWN INDICATION
     Dosage: 2 DD 1
     Route: 048
     Dates: start: 20090101

REACTIONS (1)
  - RENAL FAILURE [None]
